FAERS Safety Report 13598552 (Version 1)
Quarter: 2017Q2

REPORT INFORMATION
  Report Type: Spontaneous
  Country: FR (occurrence: FR)
  Receive Date: 20170531
  Receipt Date: 20170531
  Transmission Date: 20170830
  Serious: Yes (Hospitalization)
  Sender: FDA-Public Use
  Company Number: FR-JNJFOC-20170528280

PATIENT
  Sex: Male

DRUGS (6)
  1. IXPRIM [Suspect]
     Active Substance: ACETAMINOPHEN\TRAMADOL HYDROCHLORIDE
     Indication: OCCIPITAL NEURALGIA
     Route: 048
     Dates: end: 20170117
  2. IXPRIM [Suspect]
     Active Substance: ACETAMINOPHEN\TRAMADOL HYDROCHLORIDE
     Indication: BACK PAIN
     Route: 048
     Dates: end: 20170117
  3. TRAMADOL HYDROCHLORIDE. [Suspect]
     Active Substance: TRAMADOL HYDROCHLORIDE
     Indication: OCCIPITAL NEURALGIA
     Route: 048
     Dates: end: 20170117
  4. FENTANYL. [Suspect]
     Active Substance: FENTANYL
     Indication: PRODUCT USED FOR UNKNOWN INDICATION
     Route: 003
     Dates: end: 20170117
  5. INSTANYL [Suspect]
     Active Substance: FENTANYL
     Indication: PRODUCT USED FOR UNKNOWN INDICATION
     Route: 045
     Dates: end: 20170117
  6. TRAMADOL HYDROCHLORIDE. [Suspect]
     Active Substance: TRAMADOL HYDROCHLORIDE
     Indication: BACK PAIN
     Route: 048
     Dates: end: 20170117

REACTIONS (5)
  - Cognitive disorder [Recovered/Resolved]
  - Drug use disorder [Unknown]
  - Bradypnoea [Recovered/Resolved]
  - Overdose [Unknown]
  - Oxygen saturation decreased [Recovered/Resolved]
